FAERS Safety Report 8425984-6 (Version None)
Quarter: 2012Q2

REPORT INFORMATION
  Report Type: 
  Country: None (occurrence: None)
  Receive Date: 20120611
  Receipt Date: 20120606
  Transmission Date: 20120825
  Serious: Yes (Other)
  Sender: FDA-Public Use
  Company Number: US-BAYER-2012-056737

PATIENT
  Age: 24 Year
  Sex: Female

DRUGS (3)
  1. YASMIN [Suspect]
     Dosage: UNK
     Route: 048
     Dates: start: 20050101, end: 20060101
  2. DROSPIRENONE AND ETHINYL ESTRADIOL [Suspect]
     Dosage: UNK
     Route: 048
     Dates: start: 20100701, end: 20110401
  3. YAZ [Suspect]
     Dosage: UNK
     Route: 048
     Dates: start: 20070101, end: 20100101

REACTIONS (7)
  - INJURY [None]
  - EMOTIONAL DISTRESS [None]
  - NERVOUSNESS [None]
  - DEPRESSION [None]
  - PAIN [None]
  - CHOLECYSTECTOMY [None]
  - FEAR OF DEATH [None]
